FAERS Safety Report 4950917-4 (Version None)
Quarter: 2006Q1

REPORT INFORMATION
  Report Type: 
  Country: None (occurrence: None)
  Receive Date: 20060201
  Receipt Date: 20051007
  Transmission Date: 20060701
  Serious: No
  Sender: FDA-Public Use
  Company Number: 2005PV002934

PATIENT
  Age: 67 Year
  Sex: Female
  Weight: 107.0489 kg

DRUGS (7)
  1. BYETTA [Suspect]
     Indication: DIABETES MELLITUS NON-INSULIN-DEPENDENT
     Dosage: SEE IMAGE
     Route: 058
     Dates: start: 20050907, end: 20051006
  2. BYETTA [Suspect]
     Indication: DIABETES MELLITUS NON-INSULIN-DEPENDENT
     Dosage: SEE IMAGE
     Route: 058
     Dates: start: 20051007
  3. DETROL [Concomitant]
  4. ALLEGRA [Concomitant]
  5. TRICOR [Concomitant]
  6. MULTIVITAMINS, PLAIN [Concomitant]
  7. FISH OIL [Concomitant]

REACTIONS (5)
  - DECREASED APPETITE [None]
  - DIARRHOEA [None]
  - HEADACHE [None]
  - NAUSEA [None]
  - WEIGHT DECREASED [None]
